FAERS Safety Report 17620489 (Version 1)
Quarter: 2020Q2

REPORT INFORMATION
  Report Type: Spontaneous
  Country: CA (occurrence: CA)
  Receive Date: 20200403
  Receipt Date: 20200403
  Transmission Date: 20200713
  Serious: Yes (Disabling)
  Sender: FDA-Public Use
  Company Number: CA-ROCHE-2572639

PATIENT
  Age: 71 Year
  Sex: Female
  Weight: 63 kg

DRUGS (2)
  1. CLONAZEPAM. [Suspect]
     Active Substance: CLONAZEPAM
     Indication: STRESS
     Route: 048
  2. ZOLPIDEM [Concomitant]
     Active Substance: ZOLPIDEM TARTRATE
     Route: 048

REACTIONS (7)
  - Disturbance in attention [Unknown]
  - Fatigue [Unknown]
  - Social avoidant behaviour [Unknown]
  - Feeling abnormal [Unknown]
  - Impaired work ability [Unknown]
  - Insomnia [Unknown]
  - Malaise [Unknown]
